FAERS Safety Report 7788781-0 (Version None)
Quarter: 2011Q3

REPORT INFORMATION
  Report Type: 
  Country: None (occurrence: None)
  Receive Date: 20110930
  Receipt Date: 20110916
  Transmission Date: 20111222
  Serious: Yes (Other)
  Sender: FDA-Public Use
  Company Number: ES-ELI_LILLY_AND_COMPANY-ES201109004790

PATIENT
  Sex: Female
  Weight: 40 kg

DRUGS (6)
  1. ATORVASTATINA [Concomitant]
     Indication: BLOOD CHOLESTEROL INCREASED
     Dosage: 1 DF, QD
     Route: 048
  2. ALENDRONATE SODIUM [Concomitant]
     Indication: OSTEOPOROSIS
     Dosage: 1 DF, WEEKLY (1/W)
     Route: 048
  3. FORTEO [Suspect]
     Indication: OSTEOPOROSIS
     Dosage: 20 UG, QD
     Route: 058
     Dates: start: 20110321, end: 20110701
  4. MASTICAL [Concomitant]
     Indication: BLOOD CALCIUM
     Dosage: 2 DF, QD
     Route: 048
  5. OMEPRAZOLE [Concomitant]
     Indication: GASTRIC DISORDER
     Dosage: 1 DF, QD
     Route: 048
  6. SERC                               /00034201/ [Concomitant]
     Indication: VERTIGO
     Dosage: 1 DF, QD
     Route: 048

REACTIONS (2)
  - WEIGHT DECREASED [None]
  - DEPRESSION [None]
